FAERS Safety Report 7586315-7 (Version None)
Quarter: 2011Q2

REPORT INFORMATION
  Report Type: 
  Country: None (occurrence: None)
  Receive Date: 20110630
  Receipt Date: 20110630
  Transmission Date: 20111010
  Serious: Yes (Hospitalization)
  Sender: FDA-Public Use
  Company Number: None

PATIENT
  Sex: Male
  Weight: 69.34 kg

DRUGS (1)
  1. REMICADE [Suspect]
     Indication: PSORIATIC ARTHROPATHY
     Dosage: 400MG INDUCTION IV
     Route: 042
     Dates: start: 20110613, end: 20110627

REACTIONS (5)
  - MUSCULOSKELETAL STIFFNESS [None]
  - LOSS OF CONSCIOUSNESS [None]
  - BACK PAIN [None]
  - PAIN [None]
  - FLUSHING [None]
